FAERS Safety Report 9257397 (Version 1)
Quarter: 2013Q1

REPORT INFORMATION
  Report Type: Spontaneous
  Country: US (occurrence: None)
  Receive Date: 20121212
  Receipt Date: 20121212
  Transmission Date: 20140127
  Serious: No
  Sender: FDA-Public Use
  Company Number: 1208USA002479

PATIENT
  Age: 57 Year
  Sex: Female

DRUGS (9)
  1. VICTRELIS [Suspect]
     Indication: HEPATITIS C
     Dosage: UNK
     Dates: start: 20120722
  2. REBETOL [Suspect]
     Indication: HEPATITIS C
     Dosage: UNK
     Dates: start: 20120619
  3. PEGASYS [Suspect]
     Indication: HEPATITIS C
     Dosage: UNK
     Dates: start: 20120619
  4. METFORMIN (METFORMIN) [Concomitant]
  5. LISINOPRIL (LISINOPRIL) [Concomitant]
  6. LEVETIRACETAM (LEVETIRACETAM) [Concomitant]
  7. GABAPENTIN (GABAPENTIN) [Concomitant]
  8. LEVOTHYROXINE SODIUM (LEVOTHYROXINE SODIUM) [Concomitant]
  9. ACYCLOVIR (ACICLOVIR) 400MG [Concomitant]

REACTIONS (18)
  - Stomatitis [None]
  - Fatigue [None]
  - Decreased appetite [None]
  - Dry mouth [None]
  - Tooth extraction [None]
  - Malaise [None]
  - Toothache [None]
  - Dizziness [None]
  - Asthenia [None]
  - Dizziness [None]
  - Hypertension [None]
  - Heart rate increased [None]
  - Dysgeusia [None]
  - Tooth infection [None]
  - Gastrooesophageal reflux disease [None]
  - Flatulence [None]
  - Therapy cessation [None]
  - Haemorrhage [None]
